FAERS Safety Report 12564131 (Version 1)
Quarter: 2016Q3

REPORT INFORMATION
  Report Type: Spontaneous
  Country: US (occurrence: US)
  Receive Date: 20160718
  Receipt Date: 20160718
  Transmission Date: 20161109
  Serious: Yes (Hospitalization)
  Sender: FDA-Public Use
  Company Number: US-BEH-2016071190

PATIENT
  Sex: Female
  Weight: 92.97 kg

DRUGS (28)
  1. OMEPRAZOLE                         /00661203/ [Concomitant]
     Route: 065
  2. ACETAMINOPHEN. [Concomitant]
     Active Substance: ACETAMINOPHEN
     Route: 065
  3. LEVAQUIN [Concomitant]
     Active Substance: LEVOFLOXACIN
  4. TAMSULOSIN [Concomitant]
     Active Substance: TAMSULOSIN
  5. PREDNISOLONE. [Concomitant]
     Active Substance: PREDNISOLONE
     Route: 065
  6. LISINOPRIL. [Concomitant]
     Active Substance: LISINOPRIL
     Route: 065
  7. HIZENTRA [Suspect]
     Active Substance: HUMAN IMMUNOGLOBULIN G
     Indication: IMMUNODEFICIENCY COMMON VARIABLE
     Dosage: 22 G, QW
     Route: 058
     Dates: start: 20140904
  8. KEPPRA [Concomitant]
     Active Substance: LEVETIRACETAM
     Route: 065
  9. TRIAMCINOLON                       /00031902/ [Concomitant]
     Route: 065
  10. HIZENTRA [Suspect]
     Active Substance: HUMAN IMMUNOGLOBULIN G
     Dosage: UNK
     Route: 058
  11. AMITIZA [Concomitant]
     Active Substance: LUBIPROSTONE
     Route: 065
  12. CYCLOBENZAPRINE [Concomitant]
     Active Substance: CYCLOBENZAPRINE
     Route: 065
  13. SULFASALAZINE. [Concomitant]
     Active Substance: SULFASALAZINE
  14. HIZENTRA [Suspect]
     Active Substance: HUMAN IMMUNOGLOBULIN G
     Dosage: UNK
     Route: 058
  15. FOLIC ACID. [Concomitant]
     Active Substance: FOLIC ACID
     Route: 065
  16. VITAMIN D2 [Concomitant]
     Active Substance: ERGOCALCIFEROL
     Route: 065
  17. CALCIUM 600 PLUS VITAMIN D3 [Concomitant]
     Route: 065
  18. EPIPEN [Concomitant]
     Active Substance: EPINEPHRINE
  19. METOCLOPRAM [Concomitant]
     Active Substance: METOCLOPRAMIDE
     Route: 065
  20. AMITRIPTYLINE HCL [Concomitant]
     Active Substance: AMITRIPTYLINE
     Route: 065
  21. METHOTREXATE. [Concomitant]
     Active Substance: METHOTREXATE
     Route: 065
  22. LIPITOR [Concomitant]
     Active Substance: ATORVASTATIN CALCIUM
     Route: 065
  23. DOXICYCLIN [Concomitant]
     Active Substance: DOXYCYCLINE
     Route: 065
  24. DIPHENHYDRAMINE. [Concomitant]
     Active Substance: DIPHENHYDRAMINE
  25. GABAPENTIN. [Concomitant]
     Active Substance: GABAPENTIN
     Route: 065
  26. VENLAFAXINE HCL PHYS TOTAL CARE [Concomitant]
     Route: 065
  27. FINASTERIDE. [Concomitant]
     Active Substance: FINASTERIDE
     Route: 065
  28. LIDOCAINE                          /00033402/ [Concomitant]
     Active Substance: LIDOCAINE
     Route: 065

REACTIONS (2)
  - Seizure [Unknown]
  - Syncope [Unknown]
